FAERS Safety Report 4443135-X (Version None)
Quarter: 2004Q3

REPORT INFORMATION
  Report Type: 
  Country: None (occurrence: None)
  Receive Date: 20040903
  Receipt Date: 20040625
  Transmission Date: 20050211
  Serious: Yes (Other)
  Sender: FDA-Public Use
  Company Number: 2004UW13176

PATIENT
  Age: 64 Year
  Sex: Female
  Weight: 66.6788 kg

DRUGS (4)
  1. CRESTOR [Suspect]
     Indication: HYPERCHOLESTEROLAEMIA
     Dosage: 5 MG PO
     Route: 048
  2. COZAAR [Concomitant]
  3. ATENOLOL [Concomitant]
  4. CLONIDINE HCL [Concomitant]

REACTIONS (3)
  - ASTHENIA [None]
  - MUSCLE CRAMP [None]
  - SENSATION OF HEAVINESS [None]
